FAERS Safety Report 25080083 (Version 1)
Quarter: 2025Q1

REPORT INFORMATION
  Report Type: Report from Study
  Country: JP (occurrence: JP)
  Receive Date: 20250314
  Receipt Date: 20250314
  Transmission Date: 20250409
  Serious: Yes (Other)
  Sender: ALEXION PHARMACEUTICALS
  Company Number: JP-ASTRAZENECA-250022674_032320_P_1

PATIENT
  Age: 40 Year

DRUGS (1)
  1. ANIFROLUMAB [Suspect]
     Active Substance: ANIFROLUMAB
     Indication: Systemic lupus erythematosus
     Dosage: 300 MILLIGRAM, Q4W

REACTIONS (8)
  - Nephrotic syndrome [Recovered/Resolved]
  - Hyperuricaemia [Recovered/Resolved]
  - Abdominal distension [Recovered/Resolved]
  - Herpes zoster [Recovered/Resolved]
  - Gastroenteritis [Recovered/Resolved]
  - Enteritis infectious [Recovered/Resolved]
  - Cystitis [Recovered/Resolved]
  - Headache [Recovered/Resolved]
